FAERS Safety Report 18534820 (Version 1)
Quarter: 2020Q4

REPORT INFORMATION
  Report Type: Report from Study
  Country: ES (occurrence: ES)
  Receive Date: 20201123
  Receipt Date: 20201123
  Transmission Date: 20210114
  Serious: Yes (Hospitalization)
  Sender: FDA-Public Use
  Company Number: ES-PFIZER INC-2019-06577

PATIENT
  Age: 48 Year
  Sex: Male
  Weight: 110 kg

DRUGS (47)
  1. ETORICOXIB. [Concomitant]
     Active Substance: ETORICOXIB
     Indication: PELVIC EXENTERATION
     Dosage: 60 MG (PER DAY)
     Route: 048
  2. RANITIDINE. [Concomitant]
     Active Substance: RANITIDINE
     Indication: PREMEDICATION
     Dosage: 150 MG, AS NEEDED
     Route: 048
     Dates: start: 20190621
  3. ONDANSETRON [Concomitant]
     Active Substance: ONDANSETRON
     Indication: PREMEDICATION
  4. CETUXIMAB. [Suspect]
     Active Substance: CETUXIMAB
     Dosage: 250 MG/M2, WEEKLY
     Route: 042
  5. GABAPENTIN. [Concomitant]
     Active Substance: GABAPENTIN
     Dosage: 3 DF (PER DAY)
     Route: 048
     Dates: end: 20190726
  6. METHADONE [Concomitant]
     Active Substance: METHADONE HYDROCHLORIDE
     Dosage: 0.25 MG (AS NEEDED)
     Route: 065
     Dates: start: 20190621, end: 20190920
  7. METHADONE [Concomitant]
     Active Substance: METHADONE HYDROCHLORIDE
     Dosage: 0.25 MG, UNK
     Route: 048
     Dates: end: 20190529
  8. ETORICOXIB. [Concomitant]
     Active Substance: ETORICOXIB
     Indication: DERMATITIS ACNEIFORM
  9. DOXYCYCLINE. [Concomitant]
     Active Substance: DOXYCYCLINE
     Dosage: 100 MG (PER DAY)
     Route: 048
     Dates: start: 20190726, end: 20190830
  10. DOXYCYCLINE. [Concomitant]
     Active Substance: DOXYCYCLINE
     Dosage: 100 MG (BID (2/DAY))
     Route: 048
     Dates: start: 20190913
  11. PEITEL [Concomitant]
     Indication: ACNE
     Dosage: AS NEEDED
     Route: 065
     Dates: start: 20190605
  12. LORMETAZEPAM [Concomitant]
     Active Substance: LORMETAZEPAM
     Indication: ANXIETY
     Dosage: 1 MG, 1X/DAY (DAILY )
     Route: 048
     Dates: start: 20190529
  13. ERYTHROMYCIN. [Concomitant]
     Active Substance: ERYTHROMYCIN
     Indication: ABDOMINAL PAIN UPPER
     Dosage: 1 DF, AS NEEDED
     Route: 048
     Dates: start: 20190614
  14. ENCORAFENIB [Suspect]
     Active Substance: ENCORAFENIB
     Indication: COLON CANCER
     Dosage: 300 MG, 1X/DAY
     Route: 048
     Dates: start: 20190530, end: 20191012
  15. ENCORAFENIB [Suspect]
     Active Substance: ENCORAFENIB
     Dosage: UNK
  16. CETUXIMAB. [Suspect]
     Active Substance: CETUXIMAB
     Dosage: UNK
     Route: 042
     Dates: start: 20191018
  17. CETUXIMAB. [Suspect]
     Active Substance: CETUXIMAB
     Indication: COLON CANCER METASTATIC
     Dosage: 400 MG/M2, WEEKLY (120 MIN)
     Route: 042
     Dates: start: 20190530
  18. METHADONE [Concomitant]
     Active Substance: METHADONE HYDROCHLORIDE
     Dosage: 0.25 MG
     Route: 065
     Dates: start: 20190606, end: 20190618
  19. DICLOFENAC SODIUM. [Concomitant]
     Active Substance: DICLOFENAC SODIUM
     Indication: ABDOMINAL PAIN UPPER
     Dosage: UNK
     Route: 065
     Dates: start: 20190614
  20. RANITIDINE. [Concomitant]
     Active Substance: RANITIDINE
     Indication: DYSPEPSIA
     Dosage: 150 MG (AS NEEDED)
     Route: 065
     Dates: start: 20190621, end: 20190621
  21. DEXCHLORPHENIRAMINE [Concomitant]
     Active Substance: DEXCHLORPHENIRAMINE
     Indication: PREMEDICATION
     Dosage: 5 MG (EVERY CYCLE)
     Route: 042
     Dates: start: 20190530
  22. IRON [Concomitant]
     Active Substance: IRON
     Indication: IRON DEFICIENCY ANAEMIA
     Dosage: 20 MG/DL, DAILY
     Route: 042
     Dates: start: 20190726, end: 20190726
  23. IRON [Concomitant]
     Active Substance: IRON
     Dosage: 40 MG/DL DAILY
     Route: 042
     Dates: start: 20191011, end: 20191011
  24. LORAZEPAM. [Concomitant]
     Active Substance: LORAZEPAM
     Indication: PRODUCT USED FOR UNKNOWN INDICATION
     Dosage: BEFORE GOING TO BED IF REQUIRED
     Route: 065
  25. GABAPENTIN. [Concomitant]
     Active Substance: GABAPENTIN
     Indication: PELVIC EXENTERATION
     Dosage: 300 MG (TWICE PER DAY)
     Route: 048
     Dates: start: 20190726
  26. CIFIXIME [Concomitant]
     Active Substance: CEFIXIME
     Indication: PYREXIA
     Dosage: 200 MG (TWICE PER DAY)
     Route: 048
     Dates: start: 20190728, end: 20190802
  27. BINIMETINIB [Suspect]
     Active Substance: BINIMETINIB
     Indication: COLON CANCER METASTATIC
     Dosage: 45 MG, 2X/DAY
     Route: 048
     Dates: start: 20190530, end: 20191012
  28. METHADONE [Concomitant]
     Active Substance: METHADONE HYDROCHLORIDE
     Indication: PELVIC EXENTERATION
     Dosage: 5 MG, 1X/DAY (5 MG, QD UNK DATE TO 29MAY2019 )
     Route: 048
     Dates: end: 20190529
  29. PARACETAMOL [Concomitant]
     Active Substance: ACETAMINOPHEN
     Indication: PELVIC EXENTERATION
     Dosage: 1000 MG, AS NEEDED (1 G)
     Route: 048
     Dates: start: 20190713, end: 20190715
  30. PARACETAMOL [Concomitant]
     Active Substance: ACETAMINOPHEN
     Indication: PYREXIA
     Dosage: 1 G AS NEEDED
     Route: 065
     Dates: start: 20190727, end: 20190728
  31. ERYTHROMYCIN. [Concomitant]
     Active Substance: ERYTHROMYCIN
     Indication: ACNE
     Dosage: UNK
     Route: 061
     Dates: start: 20190614
  32. CIPROFLOXACIN. [Concomitant]
     Active Substance: CIPROFLOXACIN
     Indication: RESPIRATORY TRACT INFECTION
     Dosage: 500 MG (TWICE PER DAY)
     Route: 048
     Dates: start: 20190927, end: 20191004
  33. AMITRIPTYLIN [Concomitant]
     Active Substance: AMITRIPTYLINE
     Dosage: 10 MG (TWICE AT NIGHT)
     Route: 048
     Dates: start: 20190830, end: 20190830
  34. ERYTHROMYCIN. [Concomitant]
     Active Substance: ERYTHROMYCIN
     Indication: ABDOMINAL PAIN UPPER
  35. ERYTHROMYCIN. [Concomitant]
     Active Substance: ERYTHROMYCIN
     Indication: INFLAMMATION
  36. RANITIDINE. [Concomitant]
     Active Substance: RANITIDINE
     Indication: PREMEDICATION
  37. BUSCAPINE [Concomitant]
     Active Substance: BUTYLSCOPOLAMINE
     Indication: ABDOMINAL PAIN
     Dosage: 10 MG, AS NEEDED
     Route: 048
     Dates: start: 20190605
  38. BUSCAPINE [Concomitant]
     Active Substance: BUTYLSCOPOLAMINE
     Dosage: 10 MG (AS NEEDED)
     Route: 048
     Dates: start: 20190705
  39. DEXAMETASON [DEXAMETHASONE] [Concomitant]
     Active Substance: DEXAMETHASONE
     Indication: PREMEDICATION
     Dosage: 8 MG (EVERY CYCLE)
     Route: 042
     Dates: start: 20190530
  40. BINIMETINIB [Suspect]
     Active Substance: BINIMETINIB
     Dosage: UNK
  41. AMITRIPTYLIN [Concomitant]
     Active Substance: AMITRIPTYLINE
     Indication: PELVIC EXENTERATION
     Dosage: 100 MG (PER DAY)
     Route: 065
     Dates: start: 20190830
  42. DOXYCYCLINE. [Concomitant]
     Active Substance: DOXYCYCLINE
     Indication: ACNE
     Dosage: 100 MG, 2X/DAY
     Route: 048
     Dates: start: 20190610, end: 20190726
  43. RANITIDINE. [Concomitant]
     Active Substance: RANITIDINE
     Indication: DYSPEPSIA
     Dosage: 50 MG EVERY CYCLE
     Route: 042
     Dates: start: 20190530
  44. PREDNICARBATO [Concomitant]
     Indication: DERMATITIS ACNEIFORM
     Dosage: UNK
     Route: 061
     Dates: start: 20190605
  45. PREDNICARBATO [Concomitant]
     Indication: DERMATITIS ACNEIFORM
  46. ONDANSETRON [Concomitant]
     Active Substance: ONDANSETRON
     Indication: PREMEDICATION
     Dosage: 8 MG (EVERY CYCLE)
     Route: 042
     Dates: start: 20190530
  47. METRONIDAZOLE. [Concomitant]
     Active Substance: METRONIDAZOLE
     Indication: PYREXIA
     Dosage: 250 MG (3 TIMES PER DAY)
     Route: 048
     Dates: start: 201907, end: 201908

REACTIONS (1)
  - Bacteraemia [Recovered/Resolved]

NARRATIVE: CASE EVENT DATE: 20191012
